FAERS Safety Report 7469716-7 (Version None)
Quarter: 2011Q2

REPORT INFORMATION
  Report Type: 
  Country: None (occurrence: None)
  Receive Date: 20110510
  Receipt Date: 20110504
  Transmission Date: 20111010
  Serious: Yes (Other)
  Sender: FDA-Public Use
  Company Number: US-SANOFI-AVENTIS-2011SA018211

PATIENT
  Age: 69 Year
  Sex: Female
  Weight: 58.96 kg

DRUGS (10)
  1. INSULIN [Suspect]
     Dates: start: 20100101
  2. INSULIN [Suspect]
     Indication: DIABETES MELLITUS
     Dates: start: 20100101
  3. ALL OTHER THERAPEUTIC PRODUCTS [Concomitant]
  4. LANTUS [Suspect]
     Indication: DIABETES MELLITUS
     Dosage: DOSE:15 UNIT(S)
     Route: 058
  5. LANTUS [Suspect]
     Dosage: DOSE:15 UNIT(S)
     Route: 058
  6. LISINOPRIL [Concomitant]
     Dosage: 1 A DAY
  7. METOPROLOL TARTRATE [Concomitant]
  8. LEVOTHYROXINE SODIUM [Concomitant]
  9. PLAVIX [Concomitant]
  10. PRAVASTATIN [Concomitant]

REACTIONS (1)
  - DEMENTIA ALZHEIMER'S TYPE [None]
